FAERS Safety Report 9206639 (Version 1)
Quarter: 2013Q1

REPORT INFORMATION
  Report Type: Spontaneous
  Country: US (occurrence: None)
  Receive Date: 20120709
  Receipt Date: 20120709
  Transmission Date: 20140127
  Serious: Yes (Other)
  Sender: FDA-Public Use
  Company Number: PHHY2011US45616

PATIENT
  Age: 60 Year
  Sex: Male
  Weight: 80.9 kg

DRUGS (2)
  1. GLEEVEC (IMATINIB) UNKNOWN [Suspect]
     Route: 048
     Dates: start: 20110305, end: 20110407
  2. SPRYCEL (DASATINIB) [Concomitant]

REACTIONS (4)
  - Leukaemia recurrent [None]
  - Depression [None]
  - Drug resistance [None]
  - White blood cell count increased [None]
